FAERS Safety Report 13618657 (Version 2)
Quarter: 2017Q2

REPORT INFORMATION
  Report Type: Spontaneous
  Country: DE (occurrence: DE)
  Receive Date: 20170606
  Receipt Date: 20170607
  Transmission Date: 20170830
  Serious: Yes (Other)
  Sender: FDA-Public Use
  Company Number: DE-TEVA-773605GER

PATIENT
  Age: 15 Year
  Sex: Female
  Weight: 50 kg

DRUGS (5)
  1. QUETIAPIN RET. [Suspect]
     Active Substance: QUETIAPINE
     Dosage: 400 MILLIGRAM DAILY;
  2. L-THYROXIN [Concomitant]
     Active Substance: LEVOTHYROXINE SODIUM
     Dosage: 50 MICROGRAM DAILY;
  3. LIORAN [Concomitant]
  4. ESCITALOPRAM [Concomitant]
     Active Substance: ESCITALOPRAM OXALATE
     Dosage: 15 MILLIGRAM DAILY;
  5. LASEA [Concomitant]
     Dosage: 1 DOSAGE FORMS DAILY;

REACTIONS (5)
  - Pyrexia [Recovered/Resolved]
  - Chills [Recovering/Resolving]
  - Dysphonia [Recovering/Resolving]
  - Headache [Recovering/Resolving]
  - Interstitial lung disease [Recovering/Resolving]

NARRATIVE: CASE EVENT DATE: 20170504
